FAERS Safety Report 9769809 (Version 1)
Quarter: 2013Q4

REPORT INFORMATION
  Report Type: Spontaneous
  Country: US (occurrence: None)
  Receive Date: 20131216
  Receipt Date: 20131216
  Transmission Date: 20140711
  Serious: Yes (Other)
  Sender: FDA-Public Use
  Company Number: 2013P1021694

PATIENT
  Age: 37 Year
  Sex: Female
  Weight: 95.26 kg

DRUGS (10)
  1. OXTELLAR XR [Suspect]
     Route: 048
     Dates: start: 201311, end: 20131129
  2. TOPAMAX [Concomitant]
  3. LYRICA [Concomitant]
  4. ATIVAN [Concomitant]
  5. PRILOSEC [Concomitant]
  6. IRON [Concomitant]
  7. DAILY VITAMIN [Concomitant]
  8. VITAMIN C [Concomitant]
  9. FIORINAL [Concomitant]
  10. VICODIN [Concomitant]

REACTIONS (11)
  - Complex partial seizures [None]
  - Paraesthesia [None]
  - Paraesthesia [None]
  - Nausea [None]
  - Dyspnoea [None]
  - Apnoea [None]
  - Pain [None]
  - Speech disorder [None]
  - Drug withdrawal syndrome [None]
  - Convulsion [None]
  - Therapy cessation [None]
